FAERS Safety Report 5893660-X (Version None)
Quarter: 2008Q3

REPORT INFORMATION
  Report Type: 
  Country: None (occurrence: None)
  Receive Date: 20080923
  Receipt Date: 20071010
  Transmission Date: 20090109
  Serious: No
  Sender: FDA-Public Use
  Company Number: US-ASTRAZENECA-2007UW23177

PATIENT
  Age: 56 Year
  Sex: Female
  Weight: 86.2 kg

DRUGS (3)
  1. SEROQUEL XR [Suspect]
     Indication: BIPOLAR DISORDER
     Route: 048
  2. SEROQUEL [Concomitant]
     Route: 048
  3. LITHIUM CARBONATE [Concomitant]

REACTIONS (3)
  - PALPITATIONS [None]
  - PELVIC DISCOMFORT [None]
  - SOMNOLENCE [None]
